FAERS Safety Report 10140923 (Version 3)
Quarter: 2014Q2

REPORT INFORMATION
  Report Type: Spontaneous
  Country: CA (occurrence: CA)
  Receive Date: 20140429
  Receipt Date: 20140609
  Transmission Date: 20141212
  Serious: Yes (Hospitalization)
  Sender: FDA-Public Use
  Company Number: CA-TAKEDA-2014TUS003260

PATIENT
  Age: 81 Year
  Sex: Female
  Weight: 92.7 kg

DRUGS (13)
  1. ACTOS [Suspect]
     Indication: TYPE 2 DIABETES MELLITUS
     Dosage: 30 MG, QD
     Route: 048
     Dates: start: 201209, end: 20130708
  2. METFORMIN [Suspect]
     Indication: TYPE 2 DIABETES MELLITUS
     Dosage: 500 MG, TID
     Route: 048
     Dates: start: 20040528, end: 20130708
  3. CRESTOR [Concomitant]
     Dosage: 20 MG, QD
     Route: 048
     Dates: start: 20130213
  4. CRESTOR [Concomitant]
     Dosage: 10 MG, UNK
     Dates: start: 20130708
  5. ENTROPHEN [Concomitant]
     Dosage: 325 MG, 2 TABLETS, QD
     Route: 048
     Dates: start: 20120223
  6. EZETROL [Concomitant]
     Dosage: 10 MG, QD
     Route: 048
     Dates: start: 20081020
  7. FUROSEMIDE [Concomitant]
     Dosage: 20 MG, QD
     Route: 048
     Dates: start: 20130228
  8. GLYBURIDE [Concomitant]
     Dosage: 5 MG, BID
     Route: 048
     Dates: start: 20040528
  9. LISINOPRIL [Concomitant]
     Dosage: 20 MG, QD
     Route: 048
     Dates: start: 20040528
  10. SYNTHROID [Concomitant]
     Dosage: 0.025 MG, 1 TABLET, QD
     Route: 048
     Dates: start: 20121112
  11. TIAZAC XC [Concomitant]
     Dosage: 240 MG, QD
     Route: 048
     Dates: start: 20090430
  12. VITAMIN B12                        /00056201/ [Concomitant]
     Dosage: 1200 ?G, QD
     Route: 048
     Dates: start: 20101112
  13. VITAMIN B12                        /00056201/ [Concomitant]
     Dosage: 1 ?G, UNK
     Dates: start: 20130706

REACTIONS (11)
  - Blood glucose increased [Recovered/Resolved]
  - Blood lactic acid increased [Recovered/Resolved]
  - Blood magnesium decreased [Recovered/Resolved]
  - Cystitis klebsiella [Recovered/Resolved]
  - Fibrin D dimer increased [Recovered/Resolved]
  - Oedema peripheral [Recovered/Resolved]
  - Asthenia [Recovered/Resolved]
  - Dyspnoea [Recovered/Resolved]
  - Haemoglobin decreased [Recovered/Resolved]
  - Chest pain [Recovered/Resolved]
  - Asthenia [Recovered/Resolved]
